FAERS Safety Report 4349770-1 (Version None)
Quarter: 2004Q2

REPORT INFORMATION
  Report Type: 
  Country: None (occurrence: None)
  Receive Date: 20040426
  Receipt Date: 20040314
  Transmission Date: 20050107
  Serious: Yes (Hospitalization)
  Sender: FDA-Public Use
  Company Number: KII-2004-0009676

PATIENT
  Age: 52 Year
  Sex: Female

DRUGS (1)
  1. OXYCODONE HCL [Suspect]
     Indication: PAIN
     Dosage: ORAL
     Route: 048

REACTIONS (3)
  - DRUG TOXICITY [None]
  - MEDICATION ERROR [None]
  - SOMNOLENCE [None]
